FAERS Safety Report 26076696 (Version 1)
Quarter: 2025Q4

REPORT INFORMATION
  Report Type: Spontaneous
  Country: BR (occurrence: BR)
  Receive Date: 20251121
  Receipt Date: 20251121
  Transmission Date: 20260117
  Serious: Yes (Other)
  Sender: TEVA
  Company Number: BR-TEVA-VS-3394555

PATIENT
  Sex: Female

DRUGS (1)
  1. COPAXONE [Suspect]
     Active Substance: GLATIRAMER ACETATE
     Indication: Multiple sclerosis
     Route: 064
     Dates: start: 2012, end: 2013

REACTIONS (3)
  - Epilepsy [Recovered/Resolved]
  - Foetal exposure during pregnancy [Unknown]
  - Seizure [Recovered/Resolved]
